FAERS Safety Report 7957155-1 (Version None)
Quarter: 2011Q4

REPORT INFORMATION
  Report Type: 
  Country: None (occurrence: None)
  Receive Date: 20111205
  Receipt Date: 20111125
  Transmission Date: 20120403
  Serious: Yes (Other)
  Sender: FDA-Public Use
  Company Number: US-BAYER-2011-032383

PATIENT
  Sex: Female
  Weight: 69.388 kg

DRUGS (3)
  1. YAZ [Suspect]
     Indication: CONTRACEPTION
     Dosage: UNK
     Dates: start: 20050101, end: 20110101
  2. YAZ [Suspect]
     Indication: POLYCYSTIC OVARIES
  3. YAZ [Suspect]
     Indication: PREMENSTRUAL SYNDROME

REACTIONS (6)
  - ABDOMINAL PAIN [None]
  - INJURY [None]
  - GALLBLADDER INJURY [None]
  - NAUSEA [None]
  - DISORIENTATION [None]
  - BILIARY DYSKINESIA [None]
